FAERS Safety Report 10884422 (Version 1)
Quarter: 2015Q1

REPORT INFORMATION
  Report Type: Spontaneous
  Country: US (occurrence: None)
  Receive Date: 20150226
  Receipt Date: 20150226
  Transmission Date: 20150721
  Serious: Yes (Other)
  Sender: FDA-Public Use
  Company Number: None

PATIENT
  Age: 14 Year
  Sex: Female
  Weight: 43.55 kg

DRUGS (2)
  1. METHYLPHENIDATE [Suspect]
     Active Substance: METHYLPHENIDATE
     Indication: ATTENTION DEFICIT/HYPERACTIVITY DISORDER
     Dosage: ..P.O. Q 2
     Route: 048
  2. METHYLPHENIDATE [Suspect]
     Active Substance: METHYLPHENIDATE
     Indication: AUTISM
     Dosage: ..P.O. Q 2
     Route: 048

REACTIONS (4)
  - Abnormal behaviour [None]
  - Skin reaction [None]
  - Drug ineffective [None]
  - Skin discolouration [None]

NARRATIVE: CASE EVENT DATE: 20120807
